FAERS Safety Report 9180186 (Version 1)
Quarter: 2012Q4

REPORT INFORMATION
  Report Type: 
  Country: US (occurrence: US)
  Receive Date: 20121029
  Receipt Date: 20121029
  Transmission Date: 20130627
  Serious: Yes (Other)
  Sender: FDA-Public Use
  Company Number: US-PFIZER INC-2012268620

PATIENT
  Sex: Male

DRUGS (4)
  1. ZOLOFT [Suspect]
     Indication: MANIC DEPRESSION
     Dosage: 100 mg, 2x/day
     Route: 048
     Dates: start: 1992
  2. LORCET [Interacting]
     Indication: NERVE COMPRESSION
     Dosage: [Hydrocodone 10 mg]/[acetaminophen 650mg], 4x/day
     Route: 048
  3. ZYRTEC [Concomitant]
     Indication: ALLERGY
     Dosage: UNK
  4. ALBUTEROL [Concomitant]
     Dosage: UNK

REACTIONS (6)
  - Bipolar I disorder [Unknown]
  - Internal hernia [Not Recovered/Not Resolved]
  - Back disorder [Not Recovered/Not Resolved]
  - Pain [Unknown]
  - Drug interaction [Unknown]
  - Drug ineffective [Unknown]
